FAERS Safety Report 10240117 (Version 2)
Quarter: 2014Q2

REPORT INFORMATION
  Report Type: Spontaneous
  Country: NL (occurrence: NL)
  Receive Date: 20140617
  Receipt Date: 20140617
  Transmission Date: 20141212
  Serious: Yes (Other)
  Sender: FDA-Public Use
  Company Number: NL-AMGEN INC.-NLDSP2012085674

PATIENT
  Age: 81 Year
  Sex: Male

DRUGS (1)
  1. XGEVA [Suspect]
     Indication: PROPHYLAXIS
     Dosage: 1.7 ML, Q4WK
     Route: 058
     Dates: start: 20120924, end: 20121219

REACTIONS (2)
  - Adverse event [Not Recovered/Not Resolved]
  - Pain in jaw [Unknown]
